FAERS Safety Report 20354054 (Version 1)
Quarter: 2022Q1

REPORT INFORMATION
  Report Type: Spontaneous
  Country: US (occurrence: US)
  Receive Date: 20220120
  Receipt Date: 20220120
  Transmission Date: 20220423
  Serious: No
  Sender: FDA-Public Use
  Company Number: US-009507513-2201USA003697

PATIENT
  Age: 49 Year
  Sex: Female
  Weight: 115.6 kg

DRUGS (8)
  1. KEYTRUDA [Suspect]
     Active Substance: PEMBROLIZUMAB
     Indication: Product used for unknown indication
     Dosage: UNK
     Route: 042
  2. LENVATINIB MESYLATE [Suspect]
     Active Substance: LENVATINIB MESYLATE
     Indication: Endometrial cancer
     Dosage: 14 MILLIGRAM, 1 D
     Route: 048
     Dates: start: 20211202
  3. VITAMIN D3 [Concomitant]
     Active Substance: CHOLECALCIFEROL
  4. IRON [Concomitant]
     Active Substance: IRON
  5. VITAMIN B12 [Concomitant]
     Active Substance: CYANOCOBALAMIN
  6. VITAMINS NOS [Concomitant]
     Active Substance: VITAMINS
  7. LEVOTHYROXINE [Concomitant]
     Active Substance: LEVOTHYROXINE
  8. TYLENOL ARTHRITIS PAIN [Concomitant]
     Active Substance: ACETAMINOPHEN

REACTIONS (5)
  - Diarrhoea [Unknown]
  - Decreased appetite [Unknown]
  - Arthralgia [Unknown]
  - Nausea [Unknown]
  - Bone pain [Unknown]

NARRATIVE: CASE EVENT DATE: 20211201
